FAERS Safety Report 11386805 (Version 1)
Quarter: 2015Q3

REPORT INFORMATION
  Report Type: Spontaneous
  Country: US (occurrence: None)
  Receive Date: 20150814
  Receipt Date: 20150814
  Transmission Date: 20151125
  Serious: Yes (Hospitalization)
  Sender: FDA-Public Use
  Company Number: None

PATIENT
  Age: 82 Year
  Sex: Male
  Weight: 90.9 kg

DRUGS (19)
  1. ZOCOR [Concomitant]
     Active Substance: SIMVASTATIN
  2. MUCINEX [Concomitant]
     Active Substance: GUAIFENESIN
  3. DM [Concomitant]
  4. RIVAROXABAN [Suspect]
     Active Substance: RIVAROXABAN
     Indication: ATRIAL FIBRILLATION
     Dosage: 20MG NIGHTLY PO  CHRONIC
     Route: 048
  5. LASIX [Concomitant]
     Active Substance: FUROSEMIDE
  6. VICODIN [Concomitant]
     Active Substance: ACETAMINOPHEN\HYDROCODONE BITARTRATE
  7. KLOR-CON [Concomitant]
     Active Substance: POTASSIUM CHLORIDE
  8. NTG [Concomitant]
     Active Substance: NITROGLYCERIN
  9. COREG [Concomitant]
     Active Substance: CARVEDILOL
  10. RANEXA [Concomitant]
     Active Substance: RANOLAZINE
  11. PROVENTIL [Concomitant]
     Active Substance: ALBUTEROL
  12. TRAMADOL. [Concomitant]
     Active Substance: TRAMADOL
  13. ASA [Suspect]
     Active Substance: ASPIRIN
     Indication: CORONARY ARTERY DISEASE
     Dosage: CHRONIC
     Route: 048
  14. FLEXERIL [Concomitant]
     Active Substance: CYCLOBENZAPRINE HYDROCHLORIDE
  15. AVAPRO [Concomitant]
     Active Substance: IRBESARTAN
  16. AMIODARONE [Concomitant]
     Active Substance: AMIODARONE
  17. REMERON [Concomitant]
     Active Substance: MIRTAZAPINE
  18. FLOMAX [Concomitant]
     Active Substance: TAMSULOSIN HYDROCHLORIDE
  19. SPIRIVA [Concomitant]
     Active Substance: TIOTROPIUM BROMIDE MONOHYDRATE

REACTIONS (3)
  - Upper gastrointestinal haemorrhage [None]
  - Gastritis erosive [None]
  - Haemorrhagic anaemia [None]

NARRATIVE: CASE EVENT DATE: 20150202
